FAERS Safety Report 9419504 (Version 1)
Quarter: 2013Q3

REPORT INFORMATION
  Report Type: Spontaneous
  Country: US (occurrence: None)
  Receive Date: 20130723
  Receipt Date: 20130723
  Transmission Date: 20140515
  Serious: Yes (Death)
  Sender: FDA-Public Use
  Company Number: 13-04-001

PATIENT
  Sex: 0

DRUGS (3)
  1. CIDOFOVIR [Suspect]
     Indication: CYTOMEGALOVIRUS INFECTION
     Dosage: EQ 75 MG BASE/ML
  2. GANCICLOVIR [Concomitant]
  3. FOSCARNET [Concomitant]

REACTIONS (1)
  - Renal failure [None]
